FAERS Safety Report 5000732-0 (Version None)
Quarter: 2006Q2

REPORT INFORMATION
  Report Type: 
  Country: None (occurrence: None)
  Receive Date: 20060512
  Receipt Date: 20060503
  Transmission Date: 20061013
  Serious: Yes (Other)
  Sender: FDA-Public Use
  Company Number: PHBS2006US06709

PATIENT
  Age: 54 Year
  Sex: Male

DRUGS (6)
  1. CYCLOSPORINE [Suspect]
     Indication: HEART TRANSPLANT
     Dosage: 320 MG/D
     Route: 065
  2. PREDNISONE TAB [Suspect]
     Indication: HEART TRANSPLANT
     Dosage: 10 MG/D
     Route: 065
  3. AZATHIOPRINE [Concomitant]
     Indication: HEART TRANSPLANT
     Dosage: 150 MG/D
     Route: 065
  4. NIFEDIPINE [Concomitant]
     Dosage: 20 MG/D
  5. FUROSEMIDE [Concomitant]
     Dosage: 20 MG/D
  6. GLYBURIDE [Concomitant]

REACTIONS (5)
  - CHORIORETINOPATHY [None]
  - LASER THERAPY [None]
  - RETINAL DETACHMENT [None]
  - SUBRETINAL FIBROSIS [None]
  - THERAPEUTIC PROCEDURE [None]
